FAERS Safety Report 8881510 (Version 1)
Quarter: 2012Q4

REPORT INFORMATION
  Report Type: 
  Country: GB (occurrence: GB)
  Receive Date: 20121101
  Receipt Date: 20121101
  Transmission Date: 20130627
  Serious: Yes (Other)
  Sender: FDA-Public Use
  Company Number: GB-VERTEX PHARMACEUTICAL INC.-2012-022559

PATIENT
  Age: 54 Year
  Sex: Male
  Weight: 74 kg

DRUGS (5)
  1. INCIVO [Suspect]
     Indication: HEPATITIS C
     Dosage: 750 mg, tid
     Route: 048
     Dates: start: 20120820
  2. TRUVADA [Concomitant]
     Indication: HIV INFECTION
     Dosage: Dosage Form: Unspecified
     Route: 065
     Dates: start: 201203
  3. RALTEGRAVIR [Concomitant]
     Indication: HIV INFECTION
     Dosage: Dosage Form: Unspecified
     Route: 065
     Dates: start: 201203
  4. PEG INTERFERON [Concomitant]
     Indication: HEPATITIS C
     Dosage: Dosage Form: Injection
     Route: 058
     Dates: start: 20120828
  5. REBETOL [Concomitant]
     Indication: HEPATITIS C
     Dosage: Dosage Form: Tablets
     Route: 048
     Dates: start: 20120820

REACTIONS (3)
  - Paraesthesia [Recovered/Resolved]
  - Hyperaesthesia [Recovered/Resolved]
  - Paraesthesia [Recovered/Resolved]
